FAERS Safety Report 4666475-8 (Version None)
Quarter: 2005Q2

REPORT INFORMATION
  Report Type: 
  Country: None (occurrence: None)
  Receive Date: 20050518
  Receipt Date: 20040811
  Transmission Date: 20051028
  Serious: No
  Sender: FDA-Public Use
  Company Number: 2004228788US

PATIENT
  Sex: Female

DRUGS (3)
  1. PROVERA [Suspect]
     Route: 065
  2. PREMARIN [Concomitant]
  3. CENESTIN [Concomitant]

REACTIONS (2)
  - ALOPECIA [None]
  - AMNESIA [None]
